FAERS Safety Report 5300057-X (Version None)
Quarter: 2007Q2

REPORT INFORMATION
  Report Type: 
  Country: None (occurrence: None)
  Receive Date: 20070410
  Receipt Date: 20070328
  Transmission Date: 20071010
  Serious: No
  Sender: FDA-Public Use
  Company Number: B0455977A

PATIENT
  Age: 91 Year
  Sex: Female

DRUGS (8)
  1. ALLOPURINOL [Suspect]
     Indication: HYPERURICAEMIA
     Dosage: FOUR TIMES PER DAY ORAL
     Route: 048
     Dates: start: 20030412, end: 20061227
  2. AMOXIL [Suspect]
     Indication: WOUND INFECTION
     Dosage: 250 MG THREE TIMES PER DAY ORAL
     Route: 048
     Dates: start: 20061227, end: 20061230
  3. TICLOPIDINE HCL [Suspect]
     Indication: CEREBRAL INFARCTION
     Dosage: 100 MG FOUR TIMES PER DAY ORAL
     Route: 048
     Dates: start: 20030522, end: 20061229
  4. RANITIDINE HYDROCHLORIDE [Concomitant]
  5. FRUSEMIDE [Concomitant]
  6. CEFAZOLIN SODIUM [Concomitant]
  7. LOSARTAN POTASSIUM [Concomitant]
  8. IRON SALT [Concomitant]

REACTIONS (9)
  - DIARRHOEA [None]
  - ERYTHEMA OF EYELID [None]
  - HYPERURICAEMIA [None]
  - IMPETIGO [None]
  - LYMPHOCYTE STIMULATION TEST POSITIVE [None]
  - SCAR [None]
  - SKIN EROSION [None]
  - STEVENS-JOHNSON SYNDROME [None]
  - WOUND INFECTION [None]
